FAERS Safety Report 18992182 (Version 1)
Quarter: 2021Q1

REPORT INFORMATION
  Report Type: Spontaneous
  Country: US (occurrence: US)
  Receive Date: 20210309
  Receipt Date: 20210309
  Transmission Date: 20210420
  Serious: Yes (Hospitalization)
  Sender: FDA-Public Use
  Company Number: None

PATIENT
  Sex: Male
  Weight: 83.1 kg

DRUGS (3)
  1. VINCRISTINE SULFATE. [Concomitant]
     Active Substance: VINCRISTINE SULFATE
  2. ONCASPAR [Concomitant]
     Active Substance: PEGASPARGASE
  3. METHOTREXATE. [Suspect]
     Active Substance: METHOTREXATE

REACTIONS (5)
  - Febrile neutropenia [None]
  - Haematological malignancy [None]
  - Oral herpes [None]
  - Tachycardia [None]
  - Mouth ulceration [None]

NARRATIVE: CASE EVENT DATE: 20210305
